FAERS Safety Report 6870084-X (Version None)
Quarter: 2010Q3

REPORT INFORMATION
  Report Type: 
  Country: None (occurrence: None)
  Receive Date: 20100722
  Receipt Date: 20080912
  Transmission Date: 20110219
  Serious: No
  Sender: FDA-Public Use
  Company Number: US-PFIZER INC-2008077134

PATIENT
  Sex: Female
  Weight: 68.2 kg

DRUGS (8)
  1. CHANTIX [Suspect]
     Indication: SMOKING CESSATION THERAPY
     Dates: start: 20060101
  2. LISINOPRIL [Concomitant]
  3. HYDROCHLOROTHIAZIDE [Concomitant]
  4. LIPITOR [Concomitant]
  5. ZETIA [Concomitant]
  6. ACETYLSALICYLIC ACID [Concomitant]
  7. FOLIC ACID [Concomitant]
  8. AMBIEN [Concomitant]

REACTIONS (3)
  - FATIGUE [None]
  - LETHARGY [None]
  - NAUSEA [None]
